FAERS Safety Report 10508639 (Version 1)
Quarter: 2014Q3

REPORT INFORMATION
  Report Type: Spontaneous
  Country: US (occurrence: None)
  Receive Date: 20140915
  Receipt Date: 20140915
  Transmission Date: 20150326
  Serious: Yes (Hospitalization, Other)
  Sender: FDA-Public Use
  Company Number: 2013-US-002815

PATIENT
  Age: 23 Year
  Sex: Female

DRUGS (5)
  1. DEPAKOTE [Concomitant]
     Active Substance: DIVALPROEX SODIUM
  2. HYDROXYZINE HCL (HYDROXYZINE HYDROCHLORIDE) [Concomitant]
  3. XYREM [Suspect]
     Active Substance: SODIUM OXYBATE
     Indication: NARCOLEPSY
     Route: 048
     Dates: start: 200804, end: 20131027
  4. BUSPAR (BUSPIRONE HYDROCHLORIDE) [Concomitant]
  5. PROZAC [Concomitant]
     Active Substance: FLUOXETINE HYDROCHLORIDE

REACTIONS (10)
  - Drug withdrawal syndrome [None]
  - Anxiety [None]
  - Hypoaesthesia oral [None]
  - Abnormal behaviour [None]
  - Fatigue [None]
  - Insomnia [None]
  - Influenza [None]
  - Dependence [None]
  - Paraesthesia [None]
  - Intentional overdose [None]

NARRATIVE: CASE EVENT DATE: 2013
